FAERS Safety Report 12803691 (Version 1)
Quarter: 2016Q4

REPORT INFORMATION
  Report Type: Report from Study
  Country: JP (occurrence: JP)
  Receive Date: 20161003
  Receipt Date: 20161003
  Transmission Date: 20170207
  Serious: Yes (Other)
  Sender: FDA-Public Use
  Company Number: JP-B.I. PHARMACEUTICALS,INC./RIDGEFIELD-2015-BI-22779NB

PATIENT
  Age: 65 Year
  Sex: Female
  Weight: 59.1 kg

DRUGS (3)
  1. GILOTRIF [Suspect]
     Active Substance: AFATINIB
     Route: 065
     Dates: start: 20150305, end: 20150325
  2. GILOTRIF [Suspect]
     Active Substance: AFATINIB
     Route: 065
     Dates: start: 20150326, end: 20160409
  3. GILOTRIF [Suspect]
     Active Substance: AFATINIB
     Indication: LUNG ADENOCARCINOMA
     Route: 065
     Dates: start: 20150218, end: 20150304

REACTIONS (6)
  - Dermatitis [Recovered/Resolved]
  - Alanine aminotransferase increased [Recovered/Resolved]
  - Diarrhoea [Recovered/Resolved]
  - Malignant neoplasm progression [Not Recovered/Not Resolved]
  - Epistaxis [Recovered/Resolved]
  - Aspartate aminotransferase increased [Not Recovered/Not Resolved]

NARRATIVE: CASE EVENT DATE: 20150227
